FAERS Safety Report 7540521-6 (Version None)
Quarter: 2011Q2

REPORT INFORMATION
  Report Type: 
  Country: None (occurrence: None)
  Receive Date: 20110610
  Receipt Date: 20110602
  Transmission Date: 20111010
  Serious: Yes (Other)
  Sender: FDA-Public Use
  Company Number: A0930868A

PATIENT
  Age: 83 Year
  Sex: Female

DRUGS (3)
  1. ASPIRIN [Concomitant]
  2. PAXIL [Suspect]
     Indication: DEPRESSION
     Dosage: 20MG PER DAY
     Route: 048
     Dates: start: 20040101
  3. TRAMADOL HCL [Concomitant]

REACTIONS (3)
  - EYE HAEMORRHAGE [None]
  - READING DISORDER [None]
  - BLINDNESS UNILATERAL [None]
